FAERS Safety Report 6185555-1 (Version None)
Quarter: 2009Q2

REPORT INFORMATION
  Report Type: 
  Country: None (occurrence: None)
  Receive Date: 20090507
  Receipt Date: 20090427
  Transmission Date: 20091009
  Serious: No
  Sender: FDA-Public Use
  Company Number: 261537

PATIENT
  Age: 3 Year
  Sex: Female
  Weight: 13 kg

DRUGS (5)
  1. MIDAZOLAM HYDROCHLORIDE [Suspect]
     Indication: CONVULSION
     Dosage: 5 MG, BUCCAL
     Route: 002
     Dates: start: 20070901
  2. (CLOBAZAM) [Concomitant]
  3. (PHENOBARBITONE /00023201/) [Concomitant]
  4. VALPROATE SODIUM [Concomitant]
  5. TOPIRAMATE [Concomitant]

REACTIONS (3)
  - ERYTHEMA [None]
  - RASH MACULAR [None]
  - SWELLING FACE [None]
